FAERS Safety Report 7217848-0 (Version None)
Quarter: 2010Q4

REPORT INFORMATION
  Report Type: 
  Country: None (occurrence: None)
  Receive Date: 20101230
  Receipt Date: 20101220
  Transmission Date: 20110411
  Serious: Yes (Death, Hospitalization)
  Sender: FDA-Public Use
  Company Number: 2007-02162

PATIENT
  Age: 50 Year
  Sex: Male
  Weight: 55 kg

DRUGS (10)
  1. VELCADE [Suspect]
     Indication: MULTIPLE MYELOMA
     Dosage: 2.00 MG, UNK, INTRAVENOUS
     Route: 042
     Dates: start: 20070501, end: 20070508
  2. PREDNISOLONE [Concomitant]
  3. NEORAL [Concomitant]
  4. DIFLUCAN [Concomitant]
  5. COTRIM [Concomitant]
  6. AMLODIPINE BESYLATE [Concomitant]
  7. PERINDOPRIL ERBUMINE [Concomitant]
  8. IMMUNE GLOBULIN INTRAVENOUS (HUMAN) [Concomitant]
  9. PREDONINE-1 (PREDNISOLONE ACETATE) [Concomitant]
  10. VALIXA (VALGANCICLOVIR HYDROCHLORIDE) [Concomitant]

REACTIONS (10)
  - GRAFT VERSUS HOST DISEASE [None]
  - HYPOAESTHESIA [None]
  - HYPONATRAEMIA [None]
  - MALIGNANT NEOPLASM PROGRESSION [None]
  - MULTIPLE MYELOMA [None]
  - NEUROPATHY PERIPHERAL [None]
  - NEUTROPHIL COUNT DECREASED [None]
  - PLATELET COUNT DECREASED [None]
  - SKIN DISORDER [None]
  - STOMATITIS [None]
